FAERS Safety Report 13068285 (Version 1)
Quarter: 2016Q4

REPORT INFORMATION
  Report Type: Spontaneous
  Country: US (occurrence: US)
  Receive Date: 20161228
  Receipt Date: 20161228
  Transmission Date: 20170207
  Serious: No
  Sender: FDA-Public Use
  Company Number: None

PATIENT

DRUGS (2)
  1. MORPHINE SUL 15MG IR [Suspect]
     Active Substance: MORPHINE SULFATE
  2. MORPHINE SUL 15MG ER [Suspect]
     Active Substance: MORPHINE SULFATE

REACTIONS (2)
  - Drug dispensing error [None]
  - Drug prescribing error [None]
